FAERS Safety Report 5052839-X (Version None)
Quarter: 2006Q3

REPORT INFORMATION
  Report Type: 
  Country: None (occurrence: None)
  Receive Date: 20060705
  Receipt Date: 20060620
  Transmission Date: 20061208
  Serious: Yes (Other)
  Sender: FDA-Public Use
  Company Number: 2006BH011276

PATIENT
  Sex: Male

DRUGS (2)
  1. HEMOFIL [Suspect]
     Indication: HAEMOPHILIA CARRIER
  2. PROPLEX T [Suspect]
     Indication: HAEMOPHILIA CARRIER

REACTIONS (1)
  - HEPATITIS C VIRUS [None]
